FAERS Safety Report 4441435-0 (Version None)
Quarter: 2004Q3

REPORT INFORMATION
  Report Type: 
  Country: None (occurrence: None)
  Receive Date: 20040728
  Receipt Date: 20040330
  Transmission Date: 20050211
  Serious: No
  Sender: FDA-Public Use
  Company Number: USA040363561

PATIENT
  Sex: Male

DRUGS (4)
  1. STRATTERA [Suspect]
     Indication: ATTENTION DEFICIT/HYPERACTIVITY DISORDER
     Dosage: 25 MG/2 DAY
     Dates: start: 20040319
  2. PAXIL [Concomitant]
  3. DEPAKOTE [Concomitant]
  4. LORAZEPAM [Concomitant]

REACTIONS (2)
  - DEPRESSION [None]
  - FATIGUE [None]
